FAERS Safety Report 13510109 (Version 1)
Quarter: 2017Q2

REPORT INFORMATION
  Report Type: Report from Study
  Country: US (occurrence: US)
  Receive Date: 20170503
  Receipt Date: 20170503
  Transmission Date: 20170830
  Serious: Yes (Other)
  Sender: FDA-Public Use
  Company Number: US-MYLANLABS-2017M1025916

PATIENT

DRUGS (2)
  1. SIMVASTATIN. [Suspect]
     Active Substance: SIMVASTATIN
     Indication: PRODUCT USED FOR UNKNOWN INDICATION
     Dosage: 20MG; LATER INCREASED TO 40MG
     Route: 065
  2. SIMVASTATIN. [Suspect]
     Active Substance: SIMVASTATIN
     Dosage: 40MG
     Route: 065

REACTIONS (5)
  - Mitochondrial toxicity [Unknown]
  - Myopathy [Recovering/Resolving]
  - Myalgia [Recovering/Resolving]
  - Exercise tolerance decreased [Not Recovered/Not Resolved]
  - Neuropathy peripheral [Unknown]
